FAERS Safety Report 6898973-0 (Version None)
Quarter: 2010Q3

REPORT INFORMATION
  Report Type: 
  Country: None (occurrence: None)
  Receive Date: 20100802
  Receipt Date: 20071204
  Transmission Date: 20110219
  Serious: No
  Sender: FDA-Public Use
  Company Number: US-PFIZER INC-2007064958

PATIENT
  Sex: Female
  Weight: 95.3 kg

DRUGS (9)
  1. LYRICA [Suspect]
     Indication: FIBROMYALGIA
     Dates: start: 20070706
  2. WELLBUTRIN [Concomitant]
     Indication: SWELLING
  3. IMIPRAMINE [Concomitant]
  4. DARVOCET [Concomitant]
     Indication: PAIN
  5. ANTIHISTAMINES [Concomitant]
     Indication: INSOMNIA
  6. ASCORBIC ACID [Concomitant]
  7. ZINC [Concomitant]
  8. ACETYLSALICYLIC ACID SRT [Concomitant]
  9. XANAX [Concomitant]

REACTIONS (4)
  - DRUG INEFFECTIVE [None]
  - DYSURIA [None]
  - FEELING DRUNK [None]
  - SWELLING [None]
